FAERS Safety Report 25757723 (Version 1)
Quarter: 2025Q3

REPORT INFORMATION
  Report Type: Spontaneous
  Country: VN (occurrence: VN)
  Receive Date: 20250903
  Receipt Date: 20250903
  Transmission Date: 20251020
  Serious: Yes (Life-Threatening, Hospitalization, Other)
  Sender: SCIEGEN PHARMACEUTICALS INC
  Company Number: VN-SCIEGENP-2025SCLIT00243

PATIENT
  Age: 70 Year
  Sex: Male

DRUGS (1)
  1. AMLODIPINE BESYLATE [Suspect]
     Active Substance: AMLODIPINE BESYLATE
     Indication: Hypertension
     Route: 048

REACTIONS (7)
  - Acute respiratory distress syndrome [Recovering/Resolving]
  - Non-cardiogenic pulmonary oedema [Recovering/Resolving]
  - Coma [Recovered/Resolved]
  - Hypotension [Recovering/Resolving]
  - Bradycardia [Recovering/Resolving]
  - Toxicity to various agents [Unknown]
  - Overdose [Unknown]
